FAERS Safety Report 15391842 (Version 1)
Quarter: 2018Q3

REPORT INFORMATION
  Report Type: Spontaneous
  Country: US (occurrence: US)
  Receive Date: 20180910
  Receipt Date: 20180910
  Transmission Date: 20181010
  Serious: No
  Sender: FDA-Public Use
  Company Number: None

PATIENT
  Age: 71 Year
  Sex: Male

DRUGS (2)
  1. LEUCOVORIN CA [Suspect]
     Active Substance: LEUCOVORIN CALCIUM
     Dates: start: 20180815
  2. FLUROURACIL [Concomitant]
     Active Substance: FLUOROURACIL

REACTIONS (1)
  - Anaemia [None]

NARRATIVE: CASE EVENT DATE: 20180910
